FAERS Safety Report 5418862-8 (Version None)
Quarter: 2007Q3

REPORT INFORMATION
  Report Type: 
  Country: None (occurrence: None)
  Receive Date: 20070718
  Receipt Date: 20060803
  Transmission Date: 20080115
  Serious: Yes (Hospitalization, Other)
  Sender: FDA-Public Use
  Company Number: 2006090806

PATIENT
  Age: 64 Year
  Sex: Male
  Weight: 86.1834 kg

DRUGS (4)
  1. CELEBREX [Suspect]
     Indication: INTERVERTEBRAL DISC PROTRUSION
     Dosage: 400 MG (200 MG, 2 IN 1 D)
     Dates: start: 20010515
  2. BEXTRA [Suspect]
  3. PRILOSEC [Concomitant]
  4. HYDROCODONE BITARTRATE [Concomitant]

REACTIONS (2)
  - ACUTE MYOCARDIAL INFARCTION [None]
  - HYPERTENSION [None]
